FAERS Safety Report 13383513 (Version 2)
Quarter: 2017Q2

REPORT INFORMATION
  Report Type: Report from Study
  Country: US (occurrence: US)
  Receive Date: 20170329
  Receipt Date: 20170417
  Transmission Date: 20170830
  Serious: No
  Sender: FDA-Public Use
  Company Number: US-OTSUKA-2017_006707

PATIENT
  Age: 37 Year
  Sex: Female
  Weight: 74.3 kg

DRUGS (33)
  1. BLINDED TOLVAPTAN [Suspect]
     Active Substance: TOLVAPTAN
     Indication: CONGENITAL CYSTIC KIDNEY DISEASE
     Dosage: 90 MG, QD (IN MORNING,3 IN AM) (RANDOMIZED)
     Route: 048
     Dates: start: 20150403
  2. BLINDED *PLACEBO [Suspect]
     Active Substance: INVESTIGATIONAL PRODUCT
     Dosage: 30 MG, QD (IN EVENING,1 IN PM) (RANDOMIZED)
     Route: 048
     Dates: start: 20150403
  3. BLINDED TOLVAPTAN [Suspect]
     Active Substance: TOLVAPTAN
     Dosage: 15 MG, QD (IN EVENING, 1 IN PM) (TOLVAPTAN TITRATION)
     Route: 048
     Dates: start: 20150228, end: 20150303
  4. BLINDED *PLACEBO [Suspect]
     Active Substance: INVESTIGATIONAL PRODUCT
     Dosage: 30 MG, QD (IN EVENING, 1 IN PM) (TOLVAPTAN TITRATION)
     Route: 048
     Dates: start: 20150314, end: 20150402
  5. ATORVASTATIN [Concomitant]
     Active Substance: ATORVASTATIN
     Indication: HYPERCHOLESTEROLAEMIA
     Dosage: 10 MG, QD
     Route: 048
     Dates: start: 201309
  6. BLINDED *PLACEBO [Suspect]
     Active Substance: INVESTIGATIONAL PRODUCT
     Dosage: 45 MG, QD (IN MORNING, 3 IN AM) (TOLVAPTAN TITRATION)
     Route: 048
     Dates: start: 20150304, end: 20150307
  7. BLINDED TOLVAPTAN [Suspect]
     Active Substance: TOLVAPTAN
     Dosage: 15 MG, QD (IN EVENING, 1 IN PM) (TOLVAPTAN TITRATION)
     Route: 048
     Dates: start: 20150304, end: 20150307
  8. BLINDED *PLACEBO [Suspect]
     Active Substance: INVESTIGATIONAL PRODUCT
     Dosage: 30 MG, QD (IN EVENING, 1 IN PM) (TOLVAPTAN TITRATION)
     Route: 048
     Dates: start: 20150308, end: 20150311
  9. BLINDED TOLVAPTAN [Suspect]
     Active Substance: TOLVAPTAN
     Dosage: 30 MG, QD (IN EVENING, 1 IN PM) (TOLVAPTAN TITRATION)
     Route: 048
     Dates: start: 20150308, end: 20150311
  10. BLINDED TOLVAPTAN [Suspect]
     Active Substance: TOLVAPTAN
     Dosage: 30 MG, QD (IN EVENING, 1 IN PM) (TOLVAPTAN TITRATION)
     Route: 048
     Dates: start: 20150314, end: 20150402
  11. BLINDED *PLACEBO [Suspect]
     Active Substance: INVESTIGATIONAL PRODUCT
     Dosage: PLACEBO, QD (IN MORNING, 1 IN AM)
     Route: 048
     Dates: start: 20150221, end: 20150227
  12. TIZANIDINE. [Concomitant]
     Active Substance: TIZANIDINE
     Indication: MUSCLE SPASMS
     Dosage: 4 MG, PRN
     Route: 048
     Dates: start: 201408
  13. FERROUS SULFATE. [Concomitant]
     Active Substance: FERROUS SULFATE
     Indication: ANAEMIA
     Dosage: 325 MG, QD
     Route: 048
     Dates: start: 20150213
  14. BLINDED *PLACEBO [Suspect]
     Active Substance: INVESTIGATIONAL PRODUCT
     Indication: CONGENITAL CYSTIC KIDNEY DISEASE
     Dosage: 90 MG, QD (IN MORNING,3 IN AM) (RANDOMIZED)
     Route: 048
     Dates: start: 20150403
  15. BLINDED TOLVAPTAN [Suspect]
     Active Substance: TOLVAPTAN
     Dosage: PLACEBO, QD (IN MORNING, 1 IN AM)
     Route: 048
     Dates: start: 20150221, end: 20150227
  16. BLINDED TOLVAPTAN [Suspect]
     Active Substance: TOLVAPTAN
     Dosage: 45 MG, QD (IN MORNING, 3 IN AM) (TOLVAPTAN TITRATION)
     Route: 048
     Dates: start: 20150304, end: 20150307
  17. BLINDED *PLACEBO [Suspect]
     Active Substance: INVESTIGATIONAL PRODUCT
     Dosage: 15 MG, QD (IN EVENING, 1 IN PM) (TOLVAPTAN TITRATION)
     Route: 048
     Dates: start: 20150304, end: 20150307
  18. BLINDED TOLVAPTAN [Suspect]
     Active Substance: TOLVAPTAN
     Dosage: 30 MG, QD (IN EVENING,1 IN PM) (RANDOMIZED)
     Route: 048
     Dates: start: 20150403
  19. BLINDED TOLVAPTAN [Suspect]
     Active Substance: TOLVAPTAN
     Dosage: PLACEBO, QD (IN EVENING, 1 IN PM)
     Route: 048
     Dates: start: 20150221, end: 20150227
  20. BLINDED *PLACEBO [Suspect]
     Active Substance: INVESTIGATIONAL PRODUCT
     Dosage: 15 MG, QD (IN EVENING, 1 IN PM) (TOLVAPTAN TITRATION)
     Route: 048
     Dates: start: 20150228, end: 20150303
  21. BLINDED TOLVAPTAN [Suspect]
     Active Substance: TOLVAPTAN
     Dosage: 60 MG, QD (IN MORNING, 2 IN AM) (TOLVAPTAN TITRATION)
     Route: 048
     Dates: start: 20150308, end: 20150311
  22. BLINDED *PLACEBO [Suspect]
     Active Substance: INVESTIGATIONAL PRODUCT
     Dosage: PLACEBO, QD (IN EVENING, 1 IN PM)
     Route: 048
     Dates: start: 20150221, end: 20150227
  23. RAMIPRIL. [Concomitant]
     Active Substance: RAMIPRIL
     Indication: HYPERTENSION
     Dosage: 10 MG, QD
     Route: 048
     Dates: start: 20150505
  24. BLINDED TOLVAPTAN [Suspect]
     Active Substance: TOLVAPTAN
     Dosage: 30 MG, QD (IN MORNING, 2 IN AM) (TOLVAPTAN TITRATION)
     Route: 048
     Dates: start: 20150228, end: 20150303
  25. BLINDED *PLACEBO [Suspect]
     Active Substance: INVESTIGATIONAL PRODUCT
     Dosage: 60 MG, QD (IN MORNING, 2 IN AM) (TOLVAPTAN TITRATION)
     Route: 048
     Dates: start: 20150308, end: 20150311
  26. BLINDED *PLACEBO [Suspect]
     Active Substance: INVESTIGATIONAL PRODUCT
     Dosage: 90 MG, QD (IN MORNING, 3 IN AM) (TOLVAPTAN TITRATION)
     Route: 048
     Dates: start: 20150312, end: 20150313
  27. BLINDED *PLACEBO [Suspect]
     Active Substance: INVESTIGATIONAL PRODUCT
     Dosage: 90 MG, QD (IN MORNING, 3 IN AM) (TOLVAPTAN TITRATION)
     Route: 048
     Dates: start: 20150314, end: 20150402
  28. BLINDED TOLVAPTAN [Suspect]
     Active Substance: TOLVAPTAN
     Dosage: 90 MG, QD (IN MORNING, 3 IN AM) (TOLVAPTAN TITRATION)
     Route: 048
     Dates: start: 20150314, end: 20150402
  29. LABETALOL [Concomitant]
     Active Substance: LABETALOL\LABETALOL HYDROCHLORIDE
     Indication: HYPERTENSION
     Dosage: 200 MG, BID
     Route: 048
     Dates: start: 2004
  30. BLINDED *PLACEBO [Suspect]
     Active Substance: INVESTIGATIONAL PRODUCT
     Dosage: 30 MG, QD (IN MORNING, 2 IN AM) (TOLVAPTAN TITRATION)
     Route: 048
     Dates: start: 20150228, end: 20150303
  31. BLINDED TOLVAPTAN [Suspect]
     Active Substance: TOLVAPTAN
     Dosage: 90 MG, QD (IN MORNING, 3 IN AM) (TOLVAPTAN TITRATION)
     Route: 048
     Dates: start: 20150312, end: 20150313
  32. BLINDED *PLACEBO [Suspect]
     Active Substance: INVESTIGATIONAL PRODUCT
     Dosage: 30 MG, QD (IN EVENING, 1 IN PM) (TOLVAPTAN TITRATION)
     Route: 048
     Dates: start: 20150312, end: 20150313
  33. BLINDED TOLVAPTAN [Suspect]
     Active Substance: TOLVAPTAN
     Dosage: 30 MG, QD (IN EVENING, 1 IN PM) (TOLVAPTAN TITRATION)
     Route: 048
     Dates: start: 20150312, end: 20150313

REACTIONS (2)
  - Alanine aminotransferase increased [Recovered/Resolved]
  - Alanine aminotransferase increased [Recovered/Resolved]

NARRATIVE: CASE EVENT DATE: 20150706
